FAERS Safety Report 8912097 (Version 1)
Quarter: 2012Q4

REPORT INFORMATION
  Report Type: 
  Country: US (occurrence: US)
  Receive Date: 20121116
  Receipt Date: 20121116
  Transmission Date: 20130627
  Serious: No
  Sender: FDA-Public Use
  Company Number: US-PFIZER INC-2012286068

PATIENT
  Age: 47 Year
  Sex: Female
  Weight: 49.43 kg

DRUGS (3)
  1. PRISTIQ [Suspect]
     Indication: DEPRESSION
     Dosage: splitting 50 mg tablets into half daily at night
     Route: 048
     Dates: start: 20121109
  2. XANAX [Concomitant]
     Indication: ANXIETY
     Dosage: UNK, as needed
  3. XANAX [Concomitant]
     Indication: PANIC ATTACKS

REACTIONS (5)
  - Off label use [Unknown]
  - Intentional drug misuse [Unknown]
  - Malaise [Unknown]
  - Nausea [Not Recovered/Not Resolved]
  - Tremor [Unknown]
